FAERS Safety Report 12771298 (Version 2)
Quarter: 2016Q4

REPORT INFORMATION
  Report Type: Report from Study
  Country: US (occurrence: US)
  Receive Date: 20160922
  Receipt Date: 20161005
  Transmission Date: 20170207
  Serious: Yes (Hospitalization)
  Sender: FDA-Public Use
  Company Number: US-009507513-1609USA008200

PATIENT
  Age: 50 Year
  Sex: Female

DRUGS (4)
  1. KEYTRUDA [Suspect]
     Active Substance: PEMBROLIZUMAB
     Indication: NEOPLASM MALIGNANT
  2. KEYTRUDA [Suspect]
     Active Substance: PEMBROLIZUMAB
     Indication: HEPATIC CANCER METASTATIC
  3. KEYTRUDA [Suspect]
     Active Substance: PEMBROLIZUMAB
     Indication: BREAST CANCER
     Dosage: 100 MG, Q3W
     Route: 042
     Dates: start: 201609, end: 201609
  4. KEYTRUDA [Suspect]
     Active Substance: PEMBROLIZUMAB
     Indication: BONE CANCER METASTATIC

REACTIONS (2)
  - Product use issue [Unknown]
  - Adverse event [Unknown]

NARRATIVE: CASE EVENT DATE: 201609
